FAERS Safety Report 7493167-2 (Version None)
Quarter: 2011Q2

REPORT INFORMATION
  Report Type: 
  Country: None (occurrence: None)
  Receive Date: 20110520
  Receipt Date: 20110511
  Transmission Date: 20111010
  Serious: Yes (Hospitalization)
  Sender: FDA-Public Use
  Company Number: US-JNJFOC-20101100717

PATIENT
  Sex: Male
  Weight: 129.28 kg

DRUGS (2)
  1. USTEKINUMAB [Suspect]
     Indication: PSORIASIS
     Route: 058
     Dates: start: 20100915
  2. USTEKINUMAB [Suspect]
     Route: 058
     Dates: start: 20091120

REACTIONS (1)
  - MULTIPLE SCLEROSIS RELAPSE [None]
